FAERS Safety Report 8976054 (Version 1)
Quarter: 2012Q4

REPORT INFORMATION
  Report Type: 
  Country: US (occurrence: US)
  Receive Date: 20121218
  Receipt Date: 20121218
  Transmission Date: 20130627
  Serious: Yes (Hospitalization, Disabling, Other)
  Sender: FDA-Public Use
  Company Number: US-TARO-2012P1066835

PATIENT
  Age: 52 Year
  Sex: Male
  Weight: 70.31 kg

DRUGS (7)
  1. ETODOLAC [Suspect]
     Route: 048
     Dates: start: 20091106, end: 20091107
  2. HEPARIN [Suspect]
     Route: 042
     Dates: start: 20091110, end: 20091110
  3. HEPARIN [Suspect]
     Route: 042
     Dates: start: 20091110, end: 200911
  4. CARDIZEM [Suspect]
     Route: 042
     Dates: start: 20091110, end: 20091110
  5. CARDIZEM [Suspect]
     Route: 042
     Dates: start: 20091110, end: 20091110
  6. CARDIZEM [Suspect]
     Route: 042
     Dates: start: 20091110, end: 20091110
  7. CARDIZEM [Suspect]
     Route: 042
     Dates: start: 20091110, end: 200911

REACTIONS (17)
  - Chest discomfort [Recovering/Resolving]
  - Anxiety [Recovering/Resolving]
  - Chest pain [Recovering/Resolving]
  - Dyspnoea [Recovering/Resolving]
  - Hyperhidrosis [Recovering/Resolving]
  - Asthenia [Recovering/Resolving]
  - Tachycardia [Recovered/Resolved]
  - Atrial fibrillation [Recovered/Resolved]
  - Hypotension [Recovering/Resolving]
  - Pneumonia [Recovered/Resolved]
  - Pain [Unknown]
  - Injury [Unknown]
  - Impaired work ability [Unknown]
  - Dizziness [Recovered/Resolved]
  - Emotional distress [Unknown]
  - Activated partial thromboplastin time prolonged [Unknown]
  - Product quality issue [Unknown]
